FAERS Safety Report 7787215-X (Version None)
Quarter: 2011Q3

REPORT INFORMATION
  Report Type: 
  Country: None (occurrence: None)
  Receive Date: 20110927
  Receipt Date: 20110916
  Transmission Date: 20111222
  Serious: Yes (Hospitalization)
  Sender: FDA-Public Use
  Company Number: OMPQ-NO-1109S-1038

PATIENT
  Age: 83 Year
  Sex: Female

DRUGS (2)
  1. OMNIPAQUE 70 [Suspect]
     Indication: PRODUCT USED FOR UNKNOWN INDICATION
     Dosage: 100 ML, SINGLE DOSE, INTRAVENOUS ; 20 ML, SINGLE DOSE, INTRAVENOUS
     Route: 042
     Dates: start: 20110907, end: 20110907
  2. OMNIPAQUE 70 [Suspect]
     Indication: PRODUCT USED FOR UNKNOWN INDICATION
     Dosage: 100 ML, SINGLE DOSE, INTRAVENOUS ; 20 ML, SINGLE DOSE, INTRAVENOUS
     Route: 042
     Dates: start: 20110907, end: 20110907

REACTIONS (1)
  - RENAL FAILURE CHRONIC [None]
